FAERS Safety Report 19285733 (Version 1)
Quarter: 2021Q2

REPORT INFORMATION
  Report Type: Spontaneous
  Country: US (occurrence: US)
  Receive Date: 20210521
  Receipt Date: 20210521
  Transmission Date: 20210717
  Serious: Yes (Other)
  Sender: FDA-Public Use
  Company Number: US-ABBVIE-21K-163-3740666-00

PATIENT
  Age: 57 Year
  Sex: Female

DRUGS (1)
  1. SYNTHROID [Suspect]
     Active Substance: LEVOTHYROXINE SODIUM
     Indication: HYPOTHYROIDISM
     Route: 048
     Dates: start: 1995

REACTIONS (28)
  - Asthma [Not Recovered/Not Resolved]
  - Epistaxis [Recovered/Resolved]
  - Nasal discomfort [Recovered/Resolved]
  - Feeling abnormal [Unknown]
  - Disease progression [Not Recovered/Not Resolved]
  - Feeling abnormal [Recovered/Resolved]
  - Pain [Recovered/Resolved]
  - Lacrimation increased [Recovered/Resolved]
  - Product odour abnormal [Unknown]
  - Gait disturbance [Not Recovered/Not Resolved]
  - Sneezing [Recovered/Resolved]
  - Depressed level of consciousness [Recovered/Resolved]
  - Feeling abnormal [Recovered/Resolved]
  - Product odour abnormal [Recovered/Resolved]
  - Headache [Not Recovered/Not Resolved]
  - Cough [Not Recovered/Not Resolved]
  - Dyspnoea [Recovered/Resolved]
  - Nasal inflammation [Recovered/Resolved]
  - Thinking abnormal [Recovered/Resolved]
  - Lower respiratory tract congestion [Recovered/Resolved]
  - Dysphonia [Not Recovered/Not Resolved]
  - Aphonia [Recovered/Resolved]
  - Wheezing [Recovered/Resolved]
  - Epistaxis [Recovered/Resolved]
  - Erythema [Recovered/Resolved]
  - Migraine [Recovered/Resolved]
  - Nasal discomfort [Recovered/Resolved]
  - Heart rate decreased [Recovered/Resolved]

NARRATIVE: CASE EVENT DATE: 201612
